FAERS Safety Report 6672891-5 (Version None)
Quarter: 2010Q2

REPORT INFORMATION
  Report Type: 
  Country: None (occurrence: None)
  Receive Date: 20100408
  Receipt Date: 20100329
  Transmission Date: 20101027
  Serious: Yes (Other)
  Sender: FDA-Public Use
  Company Number: PHHY2010TW14032

PATIENT
  Sex: Female
  Weight: 54.5 kg

DRUGS (3)
  1. CGP 57148B T35717+ [Suspect]
     Indication: CHRONIC MYELOID LEUKAEMIA
     Dosage: 400 MG
     Route: 048
     Dates: start: 20100222
  2. MIFEPRISTONE [Concomitant]
     Dosage: UNK
     Dates: start: 20100311
  3. MIFEPRISTONE [Concomitant]
     Dosage: UNK
     Dates: start: 20100318

REACTIONS (2)
  - ABORTION INDUCED [None]
  - DRUG EXPOSURE DURING PREGNANCY [None]
